FAERS Safety Report 15588656 (Version 2)
Quarter: 2018Q4

REPORT INFORMATION
  Report Type: Spontaneous
  Country: ES (occurrence: ES)
  Receive Date: 20181106
  Receipt Date: 20181210
  Transmission Date: 20190205
  Serious: Yes (Hospitalization, Other)
  Sender: FDA-Public Use
  Company Number: PHHY2018ES145950

PATIENT
  Age: 91 Year
  Sex: Female

DRUGS (2)
  1. ACENOCOUMAROL [Suspect]
     Active Substance: ACENOCOUMAROL
     Indication: ATRIAL FIBRILLATION
     Dosage: 7.5 MG, QW
     Route: 065
  2. DIOVAN [Suspect]
     Active Substance: VALSARTAN
     Indication: CARDIAC FAILURE
     Dosage: UNK
     Route: 048
     Dates: start: 20151223, end: 20180720

REACTIONS (5)
  - Anaemia [Recovering/Resolving]
  - Gastrointestinal stromal tumour [Recovering/Resolving]
  - Gastrointestinal haemorrhage [Recovering/Resolving]
  - Cardiac failure [Recovered/Resolved]
  - Dieulafoy^s vascular malformation [Recovered/Resolved]

NARRATIVE: CASE EVENT DATE: 20180716
